FAERS Safety Report 25022133 (Version 2)
Quarter: 2025Q3

REPORT INFORMATION
  Report Type: Spontaneous
  Country: US (occurrence: US)
  Receive Date: 20250228
  Receipt Date: 20250816
  Transmission Date: 20251021
  Serious: No
  Sender: ALEXION PHARMACEUTICALS
  Company Number: US-AstraZeneca-CH-00816204A

PATIENT
  Sex: Female

DRUGS (2)
  1. FASENRA [Suspect]
     Active Substance: BENRALIZUMAB
     Route: 065
  2. NUCALA [Concomitant]
     Active Substance: MEPOLIZUMAB
     Route: 065

REACTIONS (3)
  - Cough [Unknown]
  - Upper respiratory tract congestion [Unknown]
  - Drug ineffective [Unknown]
